FAERS Safety Report 5064613-9 (Version None)
Quarter: 2006Q3

REPORT INFORMATION
  Report Type: 
  Country: None (occurrence: None)
  Receive Date: 20060706
  Receipt Date: 20060413
  Transmission Date: 20061208
  Serious: No
  Sender: FDA-Public Use
  Company Number: 200612359BWH

PATIENT
  Sex: Male

DRUGS (6)
  1. LEVITRA [Suspect]
     Indication: ERECTILE DYSFUNCTION
     Dosage: 20 MG, OW
     Dates: start: 20060301
  2. FLOMAX [Concomitant]
  3. ALLEGRA [Concomitant]
  4. LEVOTHROID [Concomitant]
  5. ATENOLOL [Concomitant]
  6. ALLOPURINOL [Concomitant]

REACTIONS (3)
  - ERECTILE DYSFUNCTION [None]
  - URINARY INCONTINENCE [None]
  - URINE FLOW DECREASED [None]
